FAERS Safety Report 5788798-1 (Version None)
Quarter: 2008Q2

REPORT INFORMATION
  Report Type: 
  Country: None (occurrence: None)
  Receive Date: 20080618
  Receipt Date: 20080321
  Transmission Date: 20081010
  Serious: Yes (Life-Threatening)
  Sender: FDA-Public Use
  Company Number: 200718871US

PATIENT
  Age: 58 Year
  Sex: Female

DRUGS (2)
  1. LANTUS [Suspect]
     Indication: TYPE 2 DIABETES MELLITUS
     Dosage: 45 U QD INJ
  2. INSULIN HUMAN (HUMULIN R) SOLUTION FOR INJECTION [Suspect]
     Indication: TYPE 2 DIABETES MELLITUS
     Dosage: 45 U ONCE INJ
     Dates: start: 20071217, end: 20071217

REACTIONS (3)
  - BLOOD GLUCOSE DECREASED [None]
  - MUSCLE SPASMS [None]
  - WRONG DRUG ADMINISTERED [None]
